FAERS Safety Report 15736733 (Version 1)
Quarter: 2018Q4

REPORT INFORMATION
  Report Type: Spontaneous
  Country: US (occurrence: US)
  Receive Date: 20181204
  Receipt Date: 20181204
  Transmission Date: 20190205
  Serious: No
  Sender: FDA-Public Use
  Company Number: None

PATIENT
  Age: 48 Year
  Sex: Male
  Weight: 73.8 kg

DRUGS (2)
  1. BENADRYL 50MG PO [Concomitant]
     Dates: start: 20181201, end: 20181202
  2. GAMUNEX-C [Suspect]
     Active Substance: HUMAN IMMUNOGLOBULIN G
     Indication: NEUROPATHY PERIPHERAL
     Dosage: ?          OTHER FREQUENCY:EVERY 2 WEEKS;?
     Route: 041
     Dates: start: 20181201, end: 20181202

REACTIONS (1)
  - Chest pain [None]

NARRATIVE: CASE EVENT DATE: 20181201
